FAERS Safety Report 12742651 (Version 2)
Quarter: 2016Q3

REPORT INFORMATION
  Report Type: Report from Study
  Country: IE (occurrence: IE)
  Receive Date: 20160914
  Receipt Date: 20160920
  Transmission Date: 20161109
  Serious: Yes (Other)
  Sender: FDA-Public Use
  Company Number: IE-SA-2016SA166924

PATIENT
  Age: 43 Year
  Sex: Female

DRUGS (6)
  1. ELTROXIN [Concomitant]
     Active Substance: LEVOTHYROXINE
  2. HYDROCORTISONE. [Concomitant]
     Active Substance: HYDROCORTISONE
     Dosage: PER DOSE
  3. MYOZYME [Suspect]
     Active Substance: ALGLUCOSIDASE ALFA
     Indication: GLYCOGEN STORAGE DISEASE TYPE II
     Route: 041
     Dates: start: 20150714, end: 20160825
  4. PARACETAMOL [Concomitant]
     Active Substance: ACETAMINOPHEN
  5. PIRITON [Concomitant]
     Active Substance: CHLORPHENIRAMINE MALEATE
  6. ELTROXIN [Concomitant]
     Active Substance: LEVOTHYROXINE
     Dosage: ELTROXIN XL

REACTIONS (3)
  - Cough [Not Recovered/Not Resolved]
  - Pyrexia [Not Recovered/Not Resolved]
  - Off label use [Unknown]

NARRATIVE: CASE EVENT DATE: 20150714
